FAERS Safety Report 11043087 (Version 1)
Quarter: 2015Q2

REPORT INFORMATION
  Report Type: Spontaneous
  Country: US (occurrence: None)
  Receive Date: 20150416
  Receipt Date: 20150416
  Transmission Date: 20150821
  Serious: Yes (Life-Threatening, Other)
  Sender: FDA-Public Use
  Company Number: None

PATIENT
  Age: 24 Year
  Sex: Male
  Weight: 87.09 kg

DRUGS (4)
  1. NALTREXONE 50MG [Suspect]
     Active Substance: NALTREXONE
     Indication: DEPERSONALISATION
     Route: 048
     Dates: start: 20150414, end: 20150414
  2. ST. JOHN WORT [Concomitant]
  3. NAC [Concomitant]
  4. TRAZODONE [Concomitant]
     Active Substance: TRAZODONE HYDROCHLORIDE

REACTIONS (6)
  - Condition aggravated [None]
  - Suicidal ideation [None]
  - Nausea [None]
  - Hallucination, auditory [None]
  - Hallucination, visual [None]
  - Depersonalisation [None]

NARRATIVE: CASE EVENT DATE: 20150414
